FAERS Safety Report 7249039-1 (Version None)
Quarter: 2011Q1

REPORT INFORMATION
  Report Type: 
  Country: None (occurrence: None)
  Receive Date: 20110128
  Receipt Date: 20100305
  Transmission Date: 20110831
  Serious: Yes (Hospitalization, Other)
  Sender: FDA-Public Use
  Company Number: US-BAYER-201016122NA

PATIENT
  Sex: Female
  Weight: 58.957 kg

DRUGS (6)
  1. YASMIN [Suspect]
     Indication: PRODUCT USED FOR UNKNOWN INDICATION
     Dosage: UNK UNK, UNK
     Route: 048
  2. LORTAB [Concomitant]
     Indication: PRODUCT USED FOR UNKNOWN INDICATION
  3. YAZ [Suspect]
     Indication: PREMENSTRUAL SYNDROME
     Dosage: UNK UNK, UNK
     Route: 048
     Dates: start: 20071001, end: 20080301
  4. LOVENOX [Suspect]
     Indication: PRODUCT USED FOR UNKNOWN INDICATION
  5. ORTHO TRI-CYCLEN [Suspect]
     Dosage: UNK
  6. EFFEXOR XR [Concomitant]
     Indication: DEPRESSION
     Dosage: UNK
     Dates: start: 20070101, end: 20090101

REACTIONS (7)
  - RENAL FAILURE ACUTE [None]
  - HYPOTENSION [None]
  - PULMONARY EMBOLISM [None]
  - SYNCOPE [None]
  - DEEP VEIN THROMBOSIS [None]
  - CHEST PAIN [None]
  - DYSPNOEA [None]
